FAERS Safety Report 5685294-7 (Version None)
Quarter: 2008Q1

REPORT INFORMATION
  Report Type: 
  Country: None (occurrence: None)
  Receive Date: 20080328
  Receipt Date: 20080317
  Transmission Date: 20080703
  Serious: Yes (Life-Threatening, Hospitalization)
  Sender: FDA-Public Use
  Company Number: US-PFIZER INC-2008024463

PATIENT
  Age: 42 Year
  Sex: Male

DRUGS (1)
  1. LITHIUM CARBONATE [Suspect]
     Indication: AGGRESSION

REACTIONS (2)
  - BLOOD CREATININE INCREASED [None]
  - BRUGADA SYNDROME [None]
